FAERS Safety Report 18466562 (Version 1)
Quarter: 2020Q4

REPORT INFORMATION
  Report Type: Report from Study
  Country: US (occurrence: US)
  Receive Date: 20201105
  Receipt Date: 20201105
  Transmission Date: 20210114
  Serious: Yes (Hospitalization)
  Sender: FDA-Public Use
  Company Number: US-KARYOPHARM-2017KPT000389

PATIENT
  Age: 64 Year
  Sex: Female
  Weight: 64.3 kg

DRUGS (5)
  1. PHENERGAN [Concomitant]
     Active Substance: PROMETHAZINE HYDROCHLORIDE
     Indication: NAUSEA
     Dosage: 25 UNK, UNK
     Dates: start: 20170421
  2. SELINEXOR [Suspect]
     Active Substance: SELINEXOR
     Indication: LIPOSARCOMA
     Dosage: 60 MG, 2X/WEEK
     Dates: start: 20170307, end: 20170425
  3. BISACODYL. [Concomitant]
     Active Substance: BISACODYL
     Indication: CONSTIPATION
     Dosage: 5 UNK, UNK
     Dates: start: 20170327
  4. ZOFRAN [Concomitant]
     Active Substance: ONDANSETRON HYDROCHLORIDE
     Indication: NAUSEA
     Dosage: 8 UNK, UNK
     Dates: start: 20170307
  5. NP THYROID [Concomitant]
     Active Substance: LEVOTHYROXINE\LIOTHYRONINE
     Indication: HYPOTHYROIDISM
     Dosage: 90 UNK, UNK
     Dates: start: 2009

REACTIONS (1)
  - Nausea [Recovered/Resolved]

NARRATIVE: CASE EVENT DATE: 20170427
